FAERS Safety Report 6069988-X (Version None)
Quarter: 2009Q1

REPORT INFORMATION
  Report Type: 
  Country: None (occurrence: None)
  Receive Date: 20090209
  Receipt Date: 20090130
  Transmission Date: 20090719
  Serious: Yes (Other)
  Sender: FDA-Public Use
  Company Number: FR-ASTRAZENECA-2009CG00311

PATIENT
  Age: 50 Year
  Sex: Female

DRUGS (2)
  1. NEXIUM [Suspect]
     Indication: OESOPHAGITIS
     Route: 048
     Dates: start: 20081001, end: 20081201
  2. FRACTAL [Interacting]
     Route: 048
     Dates: end: 20081201

REACTIONS (2)
  - DRUG INTERACTION [None]
  - MYALGIA [None]
